FAERS Safety Report 24308103 (Version 1)
Quarter: 2024Q3

REPORT INFORMATION
  Report Type: Other
  Country: US (occurrence: US)
  Receive Date: 20240911
  Receipt Date: 20240911
  Transmission Date: 20241016
  Serious: Yes (Hospitalization)
  Sender: SIGMA TAU
  Company Number: US-LEADIANT GMBH-2023STPI000466

PATIENT
  Sex: Male

DRUGS (1)
  1. MATULANE [Suspect]
     Active Substance: PROCARBAZINE HYDROCHLORIDE
     Indication: Hodgkin^s disease
     Dosage: 50 MILLIGRAMS, TAKE 5 CAPSULES (250 MG TOTAL) DAILY ON DAYS 1-7 OF EVERY 21 DAY CYCLE
     Route: 048
     Dates: start: 20230912

REACTIONS (3)
  - Pyrexia [Unknown]
  - White blood cell count decreased [Unknown]
  - Loss of consciousness [Unknown]
